FAERS Safety Report 9059308 (Version 1)
Quarter: 2013Q1

REPORT INFORMATION
  Report Type: Spontaneous
  Country: US (occurrence: US)
  Receive Date: 20130211
  Receipt Date: 20130211
  Transmission Date: 20140127
  Serious: No
  Sender: FDA-Public Use
  Company Number: US-ASTRAZENECA-2006UW09077

PATIENT
  Age: 75 Year
  Sex: Female
  Weight: 59 kg

DRUGS (14)
  1. NEXIUM [Suspect]
     Indication: GASTROOESOPHAGEAL REFLUX DISEASE
     Route: 048
     Dates: start: 200603
  2. NEXIUM [Suspect]
     Indication: GASTROOESOPHAGEAL REFLUX DISEASE
     Route: 048
     Dates: start: 200603
  3. NEXIUM [Suspect]
     Indication: GASTROOESOPHAGEAL REFLUX DISEASE
     Route: 048
     Dates: start: 201001
  4. NEXIUM [Suspect]
     Indication: GASTROOESOPHAGEAL REFLUX DISEASE
     Route: 048
     Dates: start: 201001
  5. NEXIUM [Suspect]
     Indication: GASTROOESOPHAGEAL REFLUX DISEASE
     Route: 048
  6. NEXIUM [Suspect]
     Indication: GASTROOESOPHAGEAL REFLUX DISEASE
     Route: 048
  7. SYNTHROID [Concomitant]
     Indication: THYROID DISORDER
  8. EVISTA [Concomitant]
     Indication: BONE DISORDER
  9. VYTORIN [Concomitant]
  10. PERCOGESIC [Concomitant]
  11. LOVALLO [Concomitant]
     Indication: BLOOD CHOLESTEROL INCREASED
  12. LOVAZA [Concomitant]
     Indication: BLOOD TRIGLYCERIDES INCREASED
  13. ONE A DAY VITAMIN [Concomitant]
     Indication: VITAMIN SUPPLEMENTATION
  14. VITAMIN D [Concomitant]
     Indication: VITAMIN SUPPLEMENTATION

REACTIONS (10)
  - Asthenia [Unknown]
  - Chest pain [Unknown]
  - Dyspepsia [Unknown]
  - Headache [Unknown]
  - Eructation [Unknown]
  - Dyspepsia [Unknown]
  - Oesophageal pain [Unknown]
  - Oesophagitis [Unknown]
  - Oesophageal irritation [Unknown]
  - Off label use [Unknown]
